FAERS Safety Report 4440181-7 (Version None)
Quarter: 2004Q3

REPORT INFORMATION
  Report Type: 
  Country: None (occurrence: None)
  Receive Date: 20040901
  Receipt Date: 20040901
  Transmission Date: 20050211
  Serious: No
  Sender: FDA-Public Use
  Company Number: None

PATIENT
  Age: 37 Year
  Sex: Female
  Weight: 150 kg

DRUGS (2)
  1. COLISTIMETHATE [Suspect]
     Indication: CYSTIC FIBROSIS
     Dosage: 70 MG IV Q 8 HRS
     Route: 042
     Dates: start: 20040820, end: 20040826
  2. CEFTAZIDIME [Concomitant]

REACTIONS (2)
  - INFUSION RELATED REACTION [None]
  - TINNITUS [None]
